FAERS Safety Report 6814390-3 (Version None)
Quarter: 2010Q3

REPORT INFORMATION
  Report Type: 
  Country: None (occurrence: None)
  Receive Date: 20100702
  Receipt Date: 20100628
  Transmission Date: 20110219
  Serious: Yes (Death)
  Sender: FDA-Public Use
  Company Number: JP-BRISTOL-MYERS SQUIBB COMPANY-15133994

PATIENT
  Age: 47 Year
  Sex: Female

DRUGS (3)
  1. ABILIFY [Suspect]
     Indication: DEPRESSION
     Route: 048
     Dates: start: 20090301, end: 20100525
  2. DESYREL [Suspect]
     Indication: DEPRESSION
     Route: 048
  3. LUVOX [Suspect]
     Indication: DEPRESSION
     Dosage: TABS
     Route: 048

REACTIONS (2)
  - ACUTE MYOCARDIAL INFARCTION [None]
  - MULTIPLE DRUG OVERDOSE [None]
